FAERS Safety Report 4699533-2 (Version None)
Quarter: 2005Q2

REPORT INFORMATION
  Report Type: 
  Country: None (occurrence: None)
  Receive Date: 20050624
  Receipt Date: 20050616
  Transmission Date: 20051028
  Serious: Yes (Hospitalization)
  Sender: FDA-Public Use
  Company Number: US-MERCK-0506USA02734

PATIENT
  Age: 80 Year
  Sex: Female
  Weight: 59 kg

DRUGS (7)
  1. VIOXX [Suspect]
     Indication: ARTHRITIS
     Route: 048
     Dates: start: 20000718, end: 20020726
  2. ASPIRIN [Concomitant]
     Route: 065
  3. CAPTOPRIL MSD [Concomitant]
     Route: 048
  4. IRON (UNSPECIFIED) [Concomitant]
     Route: 065
  5. METOPROLOL [Concomitant]
     Route: 065
  6. VENTOLIN [Concomitant]
     Route: 065
  7. TEMAZEPAM [Concomitant]
     Route: 065

REACTIONS (20)
  - ANAEMIA [None]
  - ANGINA UNSTABLE [None]
  - ASTHENIA [None]
  - BLOOD CREATININE INCREASED [None]
  - BLOOD TRIGLYCERIDES INCREASED [None]
  - BLOOD UREA INCREASED [None]
  - CARDIAC FAILURE CONGESTIVE [None]
  - CERUMEN IMPACTION [None]
  - CONTUSION [None]
  - DEHYDRATION [None]
  - DYSPEPSIA [None]
  - GASTROOESOPHAGEAL REFLUX DISEASE [None]
  - HYPERTENSION [None]
  - HYPERTENSIVE HEART DISEASE [None]
  - MYOCARDIAL ISCHAEMIA [None]
  - PAIN IN EXTREMITY [None]
  - PHARYNGOLARYNGEAL PAIN [None]
  - SYNCOPE [None]
  - URINARY TRACT INFECTION [None]
  - VENTRICULAR EXTRASYSTOLES [None]
